FAERS Safety Report 6534010-5 (Version None)
Quarter: 2010Q1

REPORT INFORMATION
  Report Type: 
  Country: None (occurrence: None)
  Receive Date: 20100112
  Receipt Date: 20100106
  Transmission Date: 20100710
  Serious: Yes (Death, Hospitalization)
  Sender: FDA-Public Use
  Company Number: US-CELGENEUS-163-50794-09120255

PATIENT
  Sex: Male
  Weight: 70 kg

DRUGS (20)
  1. VIDAZA [Suspect]
     Route: 058
     Dates: start: 20091116, end: 20091120
  2. VIDAZA [Suspect]
     Route: 058
     Dates: start: 20090825, end: 20090828
  3. RED BLOOD CELLS [Concomitant]
     Route: 051
     Dates: start: 20091101
  4. FOLIC ACID [Concomitant]
     Indication: SUPPLEMENTATION THERAPY
     Route: 048
     Dates: start: 20090810, end: 20091204
  5. PHENERGAN HCL [Concomitant]
     Indication: NAUSEA
     Route: 048
     Dates: start: 20090826, end: 20091204
  6. PHENERGAN HCL [Concomitant]
     Route: 048
  7. POTASSIUM CHLORIDE [Concomitant]
     Route: 048
     Dates: start: 20091117
  8. POTASSIUM CHLORIDE [Concomitant]
     Route: 048
     Dates: start: 20090101, end: 20091204
  9. PREDNISONE [Concomitant]
     Route: 048
  10. ALLOPURINOL [Concomitant]
     Route: 048
  11. PERCOCET [Concomitant]
     Indication: PAIN
     Dosage: 5/325
     Route: 048
  12. RESTORIL [Concomitant]
     Route: 048
  13. COLACE [Concomitant]
     Indication: CONSTIPATION
     Route: 048
  14. TYLENOL (CAPLET) [Concomitant]
     Route: 048
  15. HYDROCODONE [Concomitant]
     Indication: PAIN
     Dosage: 5/500
     Route: 065
  16. ARANESP [Concomitant]
     Route: 065
  17. MORPHINE [Concomitant]
     Indication: PAIN
     Route: 051
     Dates: start: 20091204, end: 20091204
  18. PLATELETS [Concomitant]
     Route: 051
     Dates: start: 20091101
  19. PLATELETS [Concomitant]
     Dosage: 2 UNITS
     Route: 051
     Dates: start: 20091201
  20. BETABLOCKER [Concomitant]
     Indication: VENTRICULAR TACHYCARDIA
     Route: 065
     Dates: start: 20091201

REACTIONS (12)
  - BRAIN NATRIURETIC PEPTIDE INCREASED [None]
  - EMOTIONAL DISTRESS [None]
  - FALL [None]
  - HAEMATOMA [None]
  - HAEMOLYTIC ANAEMIA [None]
  - IDIOPATHIC THROMBOCYTOPENIC PURPURA [None]
  - MYELODYSPLASTIC SYNDROME [None]
  - PAIN [None]
  - RENAL FAILURE ACUTE [None]
  - RENAL TUBULAR NECROSIS [None]
  - UPPER LIMB FRACTURE [None]
  - VENTRICULAR TACHYCARDIA [None]
